FAERS Safety Report 14671120 (Version 1)
Quarter: 2018Q1

REPORT INFORMATION
  Report Type: Spontaneous
  Country: US (occurrence: US)
  Receive Date: 20180322
  Receipt Date: 20180322
  Transmission Date: 20180509
  Serious: No
  Sender: FDA-Public Use
  Company Number: None

PATIENT
  Age: 44 Year
  Sex: Male

DRUGS (1)
  1. TALTZ [Suspect]
     Active Substance: IXEKIZUMAB
     Dosage: DATE OF EVENT GIVEN 12/07/2018 IS GREATER THAN CURRENT DATE - OMITTED

REACTIONS (2)
  - Nausea [None]
  - Fatigue [None]
